FAERS Safety Report 17020916 (Version 1)
Quarter: 2019Q4

REPORT INFORMATION
  Report Type: Spontaneous
  Country: DE (occurrence: DE)
  Receive Date: 20191112
  Receipt Date: 20191112
  Transmission Date: 20200122
  Serious: Yes (Other)
  Sender: FDA-Public Use
  Company Number: DE-ASTRAZENECA-2019SF57483

PATIENT
  Age: 45 Year
  Sex: Female

DRUGS (5)
  1. OSIMERTINIB. [Suspect]
     Active Substance: OSIMERTINIB
     Indication: PRODUCT USED FOR UNKNOWN INDICATION
     Route: 048
     Dates: start: 201801
  2. GILOTRIF [Suspect]
     Active Substance: AFATINIB
     Indication: ACQUIRED GENE MUTATION
     Route: 065
     Dates: start: 201606
  3. GILOTRIF [Suspect]
     Active Substance: AFATINIB
     Indication: ACQUIRED GENE MUTATION
     Route: 065
  4. GILOTRIF [Suspect]
     Active Substance: AFATINIB
     Indication: ADENOCARCINOMA
     Route: 065
     Dates: start: 201606
  5. GILOTRIF [Suspect]
     Active Substance: AFATINIB
     Indication: ADENOCARCINOMA
     Route: 065

REACTIONS (1)
  - Malignant neoplasm progression [Unknown]

NARRATIVE: CASE EVENT DATE: 201712
